FAERS Safety Report 7940946-0 (Version None)
Quarter: 2011Q4

REPORT INFORMATION
  Report Type: 
  Country: None (occurrence: None)
  Receive Date: 20111128
  Receipt Date: 20111117
  Transmission Date: 20120403
  Serious: Yes (Other)
  Sender: FDA-Public Use
  Company Number: JP-JNJFOC-20111108716

PATIENT

DRUGS (3)
  1. ITRACONAZOLE [Suspect]
     Indication: BRONCHOPULMONARY ASPERGILLOSIS
     Route: 048
  2. ADALAT [Interacting]
     Indication: PRODUCT USED FOR UNKNOWN INDICATION
     Route: 048
  3. PROTON PUMP INHIBITOR [Interacting]
     Indication: PEPTIC ULCER
     Route: 048

REACTIONS (3)
  - DRUG INTERACTION [None]
  - OEDEMA [None]
  - PLEURAL EFFUSION [None]
